FAERS Safety Report 11315646 (Version 3)
Quarter: 2025Q1

REPORT INFORMATION
  Report Type: Report from Study
  Country: CA (occurrence: CA)
  Receive Date: 20150728
  Receipt Date: 20250205
  Transmission Date: 20250408
  Serious: Yes (Other)
  Sender: ROCHE
  Company Number: CA-ROCHE-1613669

PATIENT
  Age: 44 Year
  Sex: Female

DRUGS (6)
  1. XOLAIR [Suspect]
     Active Substance: OMALIZUMAB
     Indication: Asthma
     Route: 058
     Dates: start: 20111026
  2. XOLAIR [Suspect]
     Active Substance: OMALIZUMAB
     Route: 058
  3. SINGULAIR [Concomitant]
     Active Substance: MONTELUKAST SODIUM
  4. BENADRYL (SINGAPORE) [Concomitant]
  5. VENTOLIN [Concomitant]
     Active Substance: ALBUTEROL SULFATE
  6. ADVAIR HFA [Concomitant]
     Active Substance: FLUTICASONE PROPIONATE\SALMETEROL XINAFOATE

REACTIONS (4)
  - Hyper IgE syndrome [Not Recovered/Not Resolved]
  - Nasal polyps [Unknown]
  - Blood pressure increased [Unknown]
  - Blood immunoglobulin E decreased [Recovering/Resolving]

NARRATIVE: CASE EVENT DATE: 20211105
